FAERS Safety Report 9847739 (Version 1)
Quarter: 2014Q1

REPORT INFORMATION
  Report Type: Spontaneous
  Country: ES (occurrence: ES)
  Receive Date: 20140128
  Receipt Date: 20140128
  Transmission Date: 20141002
  Serious: Yes (Hospitalization)
  Sender: FDA-Public Use
  Company Number: ES-ROCHE-1339153

PATIENT
  Age: 53 Year
  Sex: Female

DRUGS (1)
  1. XELODA [Suspect]
     Indication: BREAST CANCER
     Route: 048
     Dates: start: 20130627, end: 20130630

REACTIONS (4)
  - Enteritis [Recovering/Resolving]
  - Neutropenia [Recovered/Resolved]
  - Mucosal inflammation [Unknown]
  - Rash [Unknown]
